FAERS Safety Report 8448531-1 (Version None)
Quarter: 2012Q2

REPORT INFORMATION
  Report Type: 
  Country: None (occurrence: None)
  Receive Date: 20120619
  Receipt Date: 20120608
  Transmission Date: 20120825
  Serious: Yes (Life-Threatening)
  Sender: FDA-Public Use
  Company Number: FR-ROCHE-1077068

PATIENT
  Sex: Male

DRUGS (6)
  1. ZYPREXA [Suspect]
     Indication: PSYCHOTIC DISORDER
     Route: 048
     Dates: start: 20120215, end: 20120521
  2. NEORAL [Concomitant]
  3. CELLCEPT [Suspect]
     Indication: HEART TRANSPLANT
     Route: 048
     Dates: end: 20120522
  4. PROGRAF [Concomitant]
     Indication: IMMUNOSUPPRESSION
     Route: 048
  5. SOLU-MEDROL [Concomitant]
     Dosage: BOLUS
     Dates: start: 20120301
  6. PERINDOPRIL ERBUMINE [Suspect]
     Indication: HYPERTENSION
     Dates: end: 20120522

REACTIONS (4)
  - OVERDOSE [None]
  - HEART TRANSPLANT REJECTION [None]
  - AGRANULOCYTOSIS [None]
  - TOXICITY TO VARIOUS AGENTS [None]
